FAERS Safety Report 20077662 (Version 1)
Quarter: 2021Q4

REPORT INFORMATION
  Report Type: Report from Study
  Country: CA (occurrence: CA)
  Receive Date: 20211116
  Receipt Date: 20211116
  Transmission Date: 20220303
  Serious: Yes (Other)
  Sender: FDA-Public Use
  Company Number: CA-JNJFOC-20211129379

PATIENT
  Age: 6 Year
  Sex: Male
  Weight: 19.5 kg

DRUGS (1)
  1. REMICADE [Suspect]
     Active Substance: INFLIXIMAB
     Indication: Colitis ulcerative
     Dosage: ON 11-NO-2021 THE PATIENT RECEIVED 18TH INFUSION WITH THE DOSE OF 300 MG. PARTIAL MAYO COMPLETED
     Route: 042
     Dates: start: 20201001

REACTIONS (1)
  - Colitis ulcerative [Unknown]

NARRATIVE: CASE EVENT DATE: 20211110
